FAERS Safety Report 16754998 (Version 1)
Quarter: 2019Q3

REPORT INFORMATION
  Report Type: Report from Study
  Country: ZA (occurrence: ZA)
  Receive Date: 20190829
  Receipt Date: 20190829
  Transmission Date: 20191005
  Serious: Yes (Other)
  Sender: FDA-Public Use
  Company Number: ZA-MYLANLABS-2019M1081040

PATIENT

DRUGS (1)
  1. EFAVIRENZ. [Suspect]
     Active Substance: EFAVIRENZ
     Indication: HIV INFECTION
     Dosage: THERAPY CONTINUED FOR A TOTAL OF 9 MONTHS
     Route: 065

REACTIONS (4)
  - Condition aggravated [Unknown]
  - Attention deficit/hyperactivity disorder [Unknown]
  - HIV-associated neurocognitive disorder [Unknown]
  - Generalised tonic-clonic seizure [Unknown]
